FAERS Safety Report 9018790 (Version 2)
Quarter: 2013Q1

REPORT INFORMATION
  Report Type: Report from Study
  Country: US (occurrence: US)
  Receive Date: 20130118
  Receipt Date: 20130201
  Transmission Date: 20140127
  Serious: Yes (Death, Hospitalization)
  Sender: FDA-Public Use
  Company Number: US-ACTELION-A-NJ2012-75389

PATIENT
  Age: 39 Year
  Sex: Female

DRUGS (15)
  1. TRACLEER [Suspect]
     Indication: PULMONARY ARTERIAL HYPERTENSION
     Dosage: UNK
     Route: 048
     Dates: start: 200909, end: 20130107
  2. SILDENAFIL [Concomitant]
  3. TYVASO [Concomitant]
  4. PLAVIX [Concomitant]
  5. CELEBREX [Concomitant]
  6. PLAQUENIL [Concomitant]
  7. METHOTREXATE [Concomitant]
  8. STROVITE [Concomitant]
  9. NEURONTIN [Concomitant]
  10. MONOPRIL-HCT [Concomitant]
  11. SYMBICORT [Concomitant]
  12. VENTOLIN [Concomitant]
  13. LASIX [Concomitant]
  14. NOVOLIN [Concomitant]
  15. METOLAZONE [Concomitant]

REACTIONS (4)
  - Death [Fatal]
  - Pericardial effusion [Recovering/Resolving]
  - Chest discomfort [Recovering/Resolving]
  - Dyspnoea [Recovering/Resolving]
